FAERS Safety Report 8596212 (Version 6)
Quarter: 2013Q1

REPORT INFORMATION
  Report Type: Spontaneous
  Country: FR (occurrence: FR)
  Receive Date: 20120605
  Receipt Date: 20130319
  Transmission Date: 20140127
  Serious: Yes (Hospitalization)
  Sender: FDA-Public Use
  Company Number: FR-SP-2012-05490

PATIENT
  Age: 77 Year
  Sex: Male

DRUGS (3)
  1. IMMUCYST 81 MG [Suspect]
     Indication: BLADDER CANCER
     Route: 043
     Dates: end: 20120127
  2. ATACAND (CANDESARTAN CILEXETIL) [Concomitant]
     Indication: HYPERTENSION
     Route: 048
  3. EFFEXOR LP (VENLAFAXINE) [Concomitant]
     Indication: DEPRESSION
     Route: 048

REACTIONS (18)
  - Histiocytosis haematophagic [Recovered/Resolved]
  - Bovine tuberculosis [Recovered/Resolved]
  - Lower gastrointestinal haemorrhage [Recovered/Resolved]
  - Renal failure acute [Recovered/Resolved]
  - Hepatocellular injury [Recovered/Resolved]
  - Thrombocytopenia [Recovered/Resolved]
  - Melaena [Recovered/Resolved]
  - Cholestasis [Recovered/Resolved]
  - Jaundice [Recovered/Resolved]
  - Inflammation [Recovered/Resolved]
  - Oesophagitis ulcerative [Recovered/Resolved]
  - Rectal haemorrhage [Recovered/Resolved]
  - Gastric ulcer [Recovered/Resolved]
  - Malaise [Recovered/Resolved]
  - Asthenia [Recovered/Resolved]
  - Pyrexia [Recovered/Resolved]
  - Vomiting [Recovered/Resolved]
  - Hyperhidrosis [Recovered/Resolved]
